FAERS Safety Report 8016721-8 (Version None)
Quarter: 2012Q1

REPORT INFORMATION
  Report Type: 
  Country: None (occurrence: None)
  Receive Date: 20120102
  Receipt Date: 20111227
  Transmission Date: 20120608
  Serious: Yes (Other)
  Sender: FDA-Public Use
  Company Number: US-BIOGENIDEC-2011BI042968

PATIENT
  Age: 37 Year
  Sex: Female

DRUGS (4)
  1. AVONEX [Suspect]
     Indication: MULTIPLE SCLEROSIS
     Route: 030
     Dates: start: 20081028
  2. BUPROPION HCL [Concomitant]
  3. TRAZODONE HCL [Concomitant]
  4. LEVOXYL [Concomitant]

REACTIONS (2)
  - GESTATIONAL HYPERTENSION [None]
  - GESTATIONAL DIABETES [None]
